FAERS Safety Report 7009462-7 (Version None)
Quarter: 2010Q3

REPORT INFORMATION
  Report Type: 
  Country: None (occurrence: None)
  Receive Date: 20100923
  Receipt Date: 20100914
  Transmission Date: 20110219
  Serious: Yes (Hospitalization)
  Sender: FDA-Public Use
  Company Number: CA-US-EMD SERONO, INC.-230304J10CAN

PATIENT
  Sex: Female

DRUGS (4)
  1. REBIF [Suspect]
     Indication: RELAPSING-REMITTING MULTIPLE SCLEROSIS
  2. REBIF [Suspect]
     Dates: start: 20100315
  3. TYLENOL [Concomitant]
     Indication: PREMEDICATION
  4. ADVIL LIQUI-GELS [Concomitant]
     Indication: PREMEDICATION

REACTIONS (4)
  - BALANCE DISORDER [None]
  - FEELING COLD [None]
  - HYPOAESTHESIA [None]
  - MULTIPLE SCLEROSIS RELAPSE [None]
